FAERS Safety Report 5042822-2 (Version None)
Quarter: 2006Q2

REPORT INFORMATION
  Report Type: 
  Country: None (occurrence: None)
  Receive Date: 20060627
  Receipt Date: 20060612
  Transmission Date: 20061013
  Serious: Yes (Death, Other)
  Sender: FDA-Public Use
  Company Number: 2006075044

PATIENT
  Age: 67 Year
  Sex: Male
  Weight: 92 kg

DRUGS (1)
  1. SU-011,248 (SUNITINIB MALATE) SUTENT [Suspect]
     Indication: METASTATIC RENAL CELL CARCINOMA
     Dosage: 50 MG (50 MG, INTERVAL: EVERY DAY), ORAL
     Route: 048
     Dates: start: 20060505, end: 20060601

REACTIONS (9)
  - ASCITES [None]
  - DISEASE PROGRESSION [None]
  - FAECAL INCONTINENCE [None]
  - FATIGUE [None]
  - GENERAL PHYSICAL HEALTH DETERIORATION [None]
  - RENAL FAILURE [None]
  - THERAPY NON-RESPONDER [None]
  - URINARY INCONTINENCE [None]
  - WEIGHT INCREASED [None]
